FAERS Safety Report 9266299 (Version 1)
Quarter: 2013Q2

REPORT INFORMATION
  Report Type: Spontaneous
  Country: US (occurrence: US)
  Receive Date: 20130502
  Receipt Date: 20130502
  Transmission Date: 20140414
  Serious: Yes (Disabling)
  Sender: FDA-Public Use
  Company Number: US-009507513-1304USA017535

PATIENT
  Age: 54 Year
  Sex: Female

DRUGS (2)
  1. SAPHRIS [Suspect]
     Indication: BIPOLAR II DISORDER
     Dosage: 10 MG ONCE DAILY IN THE EVENING
     Route: 060
  2. LAMICTAL [Concomitant]

REACTIONS (4)
  - Sedation [Recovering/Resolving]
  - Wrong technique in drug usage process [Unknown]
  - Underdose [Unknown]
  - Inappropriate schedule of drug administration [Unknown]
